FAERS Safety Report 10342780 (Version 2)
Quarter: 2014Q3

REPORT INFORMATION
  Report Type: Spontaneous
  Country: AR (occurrence: AR)
  Receive Date: 20140725
  Receipt Date: 20140725
  Transmission Date: 20150326
  Serious: Yes (Death)
  Sender: FDA-Public Use
  Company Number: AR-PFIZER INC-2014155426

PATIENT
  Age: 55 Year
  Sex: Male

DRUGS (1)
  1. SUTENT [Suspect]
     Active Substance: SUNITINIB MALATE
     Indication: METASTATIC RENAL CELL CARCINOMA
     Dosage: 50 MG, CYCLIC SCHEME 28/21
     Dates: start: 20130929, end: 201406

REACTIONS (4)
  - Metastatic renal cell carcinoma [Unknown]
  - Renal cyst [Unknown]
  - Disease progression [Unknown]
  - Sudden death [Fatal]

NARRATIVE: CASE EVENT DATE: 201405
